FAERS Safety Report 23462213 (Version 1)
Quarter: 2024Q1

REPORT INFORMATION
  Report Type: Report from Study
  Country: US (occurrence: US)
  Receive Date: 20240131
  Receipt Date: 20240131
  Transmission Date: 20240410
  Serious: Yes (Disabling, Other)
  Sender: FDA-Public Use
  Company Number: US-BEH-2024168029

PATIENT
  Age: 49 Year
  Sex: Female
  Weight: 74.83 kg

DRUGS (2)
  1. BERINERT [Suspect]
     Active Substance: HUMAN C1-ESTERASE INHIBITOR
     Indication: Hereditary angioedema
     Dosage: 3000 INTERNATIONAL UNIT/KILOGRAM, BIW
     Route: 065
  2. BERINERT [Suspect]
     Active Substance: HUMAN C1-ESTERASE INHIBITOR
     Indication: Prophylaxis

REACTIONS (4)
  - Hereditary angioedema [Recovering/Resolving]
  - Hereditary angioedema [Not Recovered/Not Resolved]
  - Visual impairment [Not Recovered/Not Resolved]
  - Ill-defined disorder [Unknown]
